FAERS Safety Report 21148287 (Version 1)
Quarter: 2022Q3

REPORT INFORMATION
  Report Type: Spontaneous
  Country: US (occurrence: US)
  Receive Date: 20220729
  Receipt Date: 20220729
  Transmission Date: 20221027
  Serious: Yes (Other)
  Sender: FDA-Public Use
  Company Number: US-UCBSA-2022041424

PATIENT
  Age: 60 Year
  Sex: Male

DRUGS (10)
  1. LEVETIRACETAM [Suspect]
     Active Substance: LEVETIRACETAM
     Indication: Generalised tonic-clonic seizure
     Dosage: UNKNOWN DOSE
  2. LEVETIRACETAM [Suspect]
     Active Substance: LEVETIRACETAM
     Dosage: 1250 MILLIGRAM EVERY 12 HOURS
  3. VIMPAT [Suspect]
     Active Substance: LACOSAMIDE
     Indication: Status epilepticus
     Dosage: 200 MILLIGRAM EVERY 12 HOURS
  4. VIMPAT [Suspect]
     Active Substance: LACOSAMIDE
     Indication: Off label use
  5. MIDAZOLAM [Suspect]
     Active Substance: MIDAZOLAM
     Indication: Seizure
     Dosage: 140 MILLIGRAM/HOUR
  6. LORAZEPAM [Concomitant]
     Active Substance: LORAZEPAM
     Indication: Generalised tonic-clonic seizure
     Dosage: UNKNOWN DOSE
     Route: 042
  7. VANCOMYCIN [Concomitant]
     Active Substance: VANCOMYCIN
     Indication: Meningitis
     Dosage: 750 MILLIGRAM EVERY 12 HOURS
  8. CEFTRIAXONE [Concomitant]
     Active Substance: CEFTRIAXONE
     Indication: Meningitis
     Dosage: 2 GRAM EVERY 12 HOURS
  9. ACYCLOVIR ABBOTT VIAL [Concomitant]
     Indication: Meningitis
     Dosage: 10 MILLIGRAM/KILOGRAM EVERY 12 HOURS
  10. AMPICILLIN [Concomitant]
     Active Substance: AMPICILLIN
     Indication: Meningitis
     Dosage: 2 GRAM EVERY 6 HOURS

REACTIONS (2)
  - Status epilepticus [Unknown]
  - Off label use [Unknown]
